FAERS Safety Report 8499678-5 (Version None)
Quarter: 2012Q2

REPORT INFORMATION
  Report Type: 
  Country: None (occurrence: None)
  Receive Date: 20120629
  Receipt Date: 20120619
  Transmission Date: 20120825
  Serious: Yes (Other)
  Sender: FDA-Public Use
  Company Number: 217158

PATIENT
  Age: 29 Year
  Sex: Male
  Weight: 130 kg

DRUGS (2)
  1. INNOHEP [Suspect]
     Indication: THROMBOSIS PROPHYLAXIS
     Dosage: 4500 IU (4500 IU, 1 IN 1 D), SUBCUTANEOUS 18000 IU (18000 IU, 1 IN 1 D), SUBCUTANEOUS
     Route: 058
  2. INNOHEP [Suspect]
     Indication: THROMBOSIS PROPHYLAXIS
     Dosage: 4500 IU (4500 IU, 1 IN 1 D), SUBCUTANEOUS 18000 IU (18000 IU, 1 IN 1 D), SUBCUTANEOUS
     Route: 058
     Dates: start: 20120304

REACTIONS (3)
  - DEEP VEIN THROMBOSIS [None]
  - CHEST PAIN [None]
  - PULMONARY EMBOLISM [None]
